FAERS Safety Report 9669211 (Version 2)
Quarter: 2013Q4

REPORT INFORMATION
  Report Type: Spontaneous
  Country: DE (occurrence: DE)
  Receive Date: 20131105
  Receipt Date: 20131105
  Transmission Date: 20140711
  Serious: Yes (Other)
  Sender: FDA-Public Use
  Company Number: DE-THROMBOGENICS INC-JET-2013-289

PATIENT
  Sex: 0

DRUGS (2)
  1. JETREA [Suspect]
     Indication: VITREOUS ADHESIONS
     Dosage: 0.1 ML, ONE TIME DOSE
     Route: 031
     Dates: start: 20130821, end: 20130821
  2. JETREA [Suspect]
     Indication: MACULAR HOLE

REACTIONS (3)
  - Macular hole [Recovered/Resolved with Sequelae]
  - Retinoschisis [Recovered/Resolved with Sequelae]
  - No therapeutic response [Unknown]
